FAERS Safety Report 26038065 (Version 1)
Quarter: 2025Q4

REPORT INFORMATION
  Report Type: Spontaneous
  Country: KR (occurrence: KR)
  Receive Date: 20251112
  Receipt Date: 20251112
  Transmission Date: 20260117
  Serious: Yes (Death)
  Sender: CELLTRION
  Company Number: KR-CELLTRION INC.-2025KR040634

PATIENT

DRUGS (3)
  1. EYDENZELT [Suspect]
     Active Substance: AFLIBERCEPT-BOAV
     Indication: Neovascular age-related macular degeneration
     Dosage: UNK, INTRAVITREAL INJECTION, ONCE
     Dates: start: 20251014, end: 20251014
  2. PHENYLEPHRINE HYDROCHLORIDE\TROPICAMIDE [Concomitant]
     Active Substance: PHENYLEPHRINE HYDROCHLORIDE\TROPICAMIDE
     Dosage: 0.8ML, QD, ONCE
  3. PARACAINE [Concomitant]
     Active Substance: PROPARACAINE HYDROCHLORIDE
     Dosage: 0.5ML, QD, ONCE

REACTIONS (2)
  - Cardiac disorder [Fatal]
  - Renal disorder [Fatal]
